FAERS Safety Report 6864556-1 (Version None)
Quarter: 2010Q3

REPORT INFORMATION
  Report Type: 
  Country: None (occurrence: None)
  Receive Date: 20100721
  Receipt Date: 20080327
  Transmission Date: 20110219
  Serious: Yes (Other)
  Sender: FDA-Public Use
  Company Number: US-PFIZER INC-2008028291

PATIENT
  Sex: Male
  Weight: 95.454 kg

DRUGS (2)
  1. CHANTIX [Suspect]
     Indication: SMOKING CESSATION THERAPY
     Dates: start: 20070829
  2. LISINOPRIL [Concomitant]
     Dosage: DAILY

REACTIONS (6)
  - ABNORMAL DREAMS [None]
  - HEADACHE [None]
  - MALAISE [None]
  - MOOD SWINGS [None]
  - SOMNOLENCE [None]
  - WRONG TECHNIQUE IN DRUG USAGE PROCESS [None]
